FAERS Safety Report 21566145 (Version 1)
Quarter: 2022Q4

REPORT INFORMATION
  Report Type: Spontaneous
  Country: US (occurrence: US)
  Receive Date: 20221108
  Receipt Date: 20221108
  Transmission Date: 20230113
  Serious: Yes (Death, Hospitalization, Other)
  Sender: FDA-Public Use
  Company Number: US-FreseniusKabi-FK202214815

PATIENT
  Age: 30 Year
  Sex: Male

DRUGS (3)
  1. ETOPOSIDE [Suspect]
     Active Substance: ETOPOSIDE
     Indication: Testis cancer
  2. BLEOMYCIN [Suspect]
     Active Substance: BLEOMYCIN SULFATE
     Indication: Testis cancer
  3. CISPLATIN [Suspect]
     Active Substance: CISPLATIN
     Indication: Testis cancer

REACTIONS (2)
  - Pneumonitis [Fatal]
  - Acute respiratory distress syndrome [Unknown]
